FAERS Safety Report 11402605 (Version 2)
Quarter: 2015Q3

REPORT INFORMATION
  Report Type: Report from Study
  Country: US (occurrence: US)
  Receive Date: 20150821
  Receipt Date: 20150916
  Transmission Date: 20151125
  Serious: Yes (Other)
  Sender: FDA-Public Use
  Company Number: US-ROCHE-1622847

PATIENT
  Sex: Male

DRUGS (1)
  1. ALTEPLASE [Suspect]
     Active Substance: ALTEPLASE
     Indication: PROPHYLAXIS
     Route: 065

REACTIONS (4)
  - Thrombosis [Unknown]
  - Angiopathy [Unknown]
  - Device malfunction [Unknown]
  - Infection [Unknown]
